FAERS Safety Report 14607789 (Version 2)
Quarter: 2018Q1

REPORT INFORMATION
  Report Type: Report from Study
  Country: CO (occurrence: CO)
  Receive Date: 20180307
  Receipt Date: 20180321
  Transmission Date: 20180509
  Serious: No
  Sender: FDA-Public Use
  Company Number: CO-ACTELION-A-CH2018-166015

PATIENT
  Age: 27 Year
  Sex: Female
  Weight: 45 kg

DRUGS (3)
  1. OPSUMIT [Suspect]
     Active Substance: MACITENTAN
     Indication: PULMONARY ARTERIAL HYPERTENSION
     Dosage: 10 MG, QD
     Route: 048
     Dates: start: 20170615, end: 20171205
  2. SILDENAFIL. [Concomitant]
     Active Substance: SILDENAFIL
     Indication: PULMONARY ARTERIAL HYPERTENSION
     Dosage: 50 MG, BID
     Route: 048
     Dates: start: 20161001
  3. ILOPROST. [Concomitant]
     Active Substance: ILOPROST
     Indication: PULMONARY ARTERIAL HYPERTENSION
     Dosage: 10 ?G, Q4HRS
     Route: 055
     Dates: start: 20171208

REACTIONS (7)
  - Abdominal pain [Recovered/Resolved]
  - Jaundice [Recovered/Resolved]
  - Aspartate aminotransferase increased [Recovered/Resolved]
  - Bilirubin conjugated increased [Recovered/Resolved]
  - Hepatic enzyme increased [Recovered/Resolved]
  - Blood bilirubin increased [Recovered/Resolved]
  - Alanine aminotransferase increased [Recovered/Resolved]

NARRATIVE: CASE EVENT DATE: 20171107
